FAERS Safety Report 8098033-X (Version None)
Quarter: 2012Q1

REPORT INFORMATION
  Report Type: 
  Country: None (occurrence: None)
  Receive Date: 20120128
  Receipt Date: 20110727
  Transmission Date: 20120608
  Serious: No
  Sender: FDA-Public Use
  Company Number: US-ABBOTT-11P-163-0842057-00

PATIENT
  Age: 23 Year
  Sex: Male

DRUGS (4)
  1. HUMIRA [Suspect]
     Indication: PSORIATIC ARTHROPATHY
     Dates: start: 20101001, end: 20101001
  2. HUMIRA [Suspect]
     Dates: start: 20110101
  3. HUMIRA [Suspect]
     Route: 058
     Dates: start: 20110727
  4. MELOXICAM [Concomitant]
     Indication: PAIN

REACTIONS (1)
  - PSORIATIC ARTHROPATHY [None]
